FAERS Safety Report 25504356 (Version 1)
Quarter: 2025Q3

REPORT INFORMATION
  Report Type: Spontaneous
  Country: US (occurrence: None)
  Receive Date: 20250701
  Receipt Date: 20250701
  Transmission Date: 20251020
  Serious: Yes (Life-Threatening)
  Sender: FDA-CTU
  Company Number: None

PATIENT
  Age: 38 Year
  Sex: Female

DRUGS (4)
  1. CYCLOBENZAPRINE [Suspect]
     Active Substance: CYCLOBENZAPRINE
     Indication: Pain
     Dosage: 30 TABLET(S) 3 TIMES A DAY ORAL ?
     Route: 048
     Dates: start: 20250403, end: 20250403
  2. CYCLOBENZAPRINE [Suspect]
     Active Substance: CYCLOBENZAPRINE
     Indication: Joint range of motion decreased
  3. VITAMINS [Concomitant]
     Active Substance: VITAMINS
  4. ZINC [Concomitant]
     Active Substance: ZINC

REACTIONS (12)
  - Dizziness [None]
  - Discomfort [None]
  - Heart rate decreased [None]
  - Cognitive disorder [None]
  - Tinnitus [None]
  - Hypoacusis [None]
  - Mental disorder [None]
  - Pain [None]
  - Feeling abnormal [None]
  - Diarrhoea [None]
  - Impaired work ability [None]
  - Coordination abnormal [None]

NARRATIVE: CASE EVENT DATE: 20250403
